FAERS Safety Report 5793741-5 (Version None)
Quarter: 2008Q2

REPORT INFORMATION
  Report Type: 
  Country: None (occurrence: None)
  Receive Date: 20080627
  Receipt Date: 20080613
  Transmission Date: 20081010
  Serious: Yes (Other)
  Sender: FDA-Public Use
  Company Number: US-BAYER-200826529NA

PATIENT
  Sex: Male

DRUGS (1)
  1. SORAFENIB [Suspect]
     Indication: PROSTATE CANCER METASTATIC
     Dosage: TOTAL DAILY DOSE: 800 MG  UNIT DOSE: 200 MG
     Route: 048

REACTIONS (8)
  - CATHETER THROMBOSIS [None]
  - EXFOLIATIVE RASH [None]
  - FATIGUE [None]
  - HYPERKALAEMIA [None]
  - INFECTION [None]
  - NAUSEA [None]
  - PHARYNGOLARYNGEAL PAIN [None]
  - THROMBOCYTOPENIA [None]
